FAERS Safety Report 6720615-5 (Version None)
Quarter: 2010Q2

REPORT INFORMATION
  Report Type: 
  Country: None (occurrence: None)
  Receive Date: 20100510
  Receipt Date: 20100429
  Transmission Date: 20101027
  Serious: Yes (Hospitalization, Other)
  Sender: FDA-Public Use
  Company Number: 2010AC000083

PATIENT
  Age: 66 Year
  Sex: Female

DRUGS (11)
  1. DIGOXIN [Suspect]
     Indication: ATRIAL FIBRILLATION
     Dosage: 0.25 MG;QD;PO
     Route: 048
     Dates: start: 20071016
  2. GLIPIZIDE [Concomitant]
  3. METOFORMIN [Concomitant]
  4. HYDROCHLOROTHIAZIDE [Concomitant]
  5. TENORMIN [Concomitant]
  6. WARFARIN SODIUM [Concomitant]
  7. JANUMET [Concomitant]
  8. CARDIZEM [Concomitant]
  9. GLUCOTROL [Concomitant]
  10. PRINIVIL [Concomitant]
  11. INSULIN [Concomitant]

REACTIONS (35)
  - ANHEDONIA [None]
  - AORTIC STENOSIS [None]
  - AORTIC VALVE INCOMPETENCE [None]
  - ASTHENIA [None]
  - ATRIOVENTRICULAR BLOCK FIRST DEGREE [None]
  - ATRIOVENTRICULAR BLOCK SECOND DEGREE [None]
  - BACK PAIN [None]
  - BLOOD GLUCOSE INCREASED [None]
  - BLOOD PRESSURE INADEQUATELY CONTROLLED [None]
  - BRADYCARDIA [None]
  - CARDIAC DISORDER [None]
  - CARDIOACTIVE DRUG LEVEL DECREASED [None]
  - CARDIOVASCULAR DISORDER [None]
  - CHEST DISCOMFORT [None]
  - DIABETES MELLITUS INADEQUATE CONTROL [None]
  - DILATATION ATRIAL [None]
  - DIZZINESS [None]
  - ECONOMIC PROBLEM [None]
  - ELECTROCARDIOGRAM ABNORMAL [None]
  - EMOTIONAL DISORDER [None]
  - FATIGUE [None]
  - FLANK PAIN [None]
  - GLYCOSYLATED HAEMOGLOBIN INCREASED [None]
  - INJECTION SITE ERYTHEMA [None]
  - INJECTION SITE SWELLING [None]
  - MENTAL DISORDER [None]
  - MITRAL VALVE INCOMPETENCE [None]
  - MITRAL VALVE STENOSIS [None]
  - MYOCARDIAL ISCHAEMIA [None]
  - PAIN [None]
  - PALPITATIONS [None]
  - PROTHROMBIN TIME PROLONGED [None]
  - SINUS TACHYCARDIA [None]
  - THERAPEUTIC AGENT TOXICITY [None]
  - TRICUSPID VALVE INCOMPETENCE [None]
